FAERS Safety Report 9040199 (Version 1)
Quarter: 2013Q1

REPORT INFORMATION
  Report Type: Report from Study
  Country: US (occurrence: US)
  Receive Date: 20130129
  Receipt Date: 20130129
  Transmission Date: 20140127
  Serious: No
  Sender: FDA-Public Use
  Company Number: US-ABBOTT-11P-163-0847641-00

PATIENT
  Age: 42 Year
  Sex: Female

DRUGS (4)
  1. HUMIRA 40 MG/0.8 ML PEN [Suspect]
     Indication: CROHN^S DISEASE
     Dates: start: 20110623, end: 201110
  2. CYMBALTA [Concomitant]
     Indication: DEPRESSION
  3. AMBIEN [Concomitant]
     Indication: INSOMNIA
     Dosage: 10 MG AT BEDTIME
  4. FENTANYL [Concomitant]
     Indication: PAIN
     Dosage: PATCH 1 EVERY 72 HOURS
     Route: 051

REACTIONS (13)
  - Headache [Recovered/Resolved]
  - Nausea [Unknown]
  - Wrong technique in drug usage process [Unknown]
  - Drug dose omission [Unknown]
  - Injection site oedema [Unknown]
  - Injection site pain [Unknown]
  - Arthropod bite [Recovered/Resolved]
  - Pruritus [Recovered/Resolved]
  - Wound secretion [Recovered/Resolved]
  - Furuncle [Recovered/Resolved]
  - Pain [Recovered/Resolved]
  - Pain [Unknown]
  - Pain [Not Recovered/Not Resolved]
